FAERS Safety Report 5893463-6 (Version None)
Quarter: 2008Q3

REPORT INFORMATION
  Report Type: 
  Country: None (occurrence: None)
  Receive Date: 20080923
  Receipt Date: 20080916
  Transmission Date: 20090109
  Serious: Yes (Hospitalization)
  Sender: FDA-Public Use
  Company Number: DE-BRISTOL-MYERS SQUIBB COMPANY-14302491

PATIENT
  Age: 53 Year
  Sex: Male
  Weight: 83 kg

DRUGS (7)
  1. CETUXIMAB [Suspect]
     Indication: HEAD AND NECK CANCER
     Dosage: 250MG/M2.
     Route: 042
     Dates: start: 20080327, end: 20080626
  2. CISPLATIN [Suspect]
     Indication: HEAD AND NECK CANCER
     Dosage: 75 MG/M2
     Route: 042
     Dates: start: 20080327, end: 20080515
  3. DOCETAXEL [Suspect]
     Indication: HEAD AND NECK CANCER
     Dosage: 75 MG/M2.
     Route: 042
     Dates: start: 20080327, end: 20080515
  4. FLUOROURACIL [Suspect]
     Indication: HEAD AND NECK CANCER
     Route: 042
     Dates: start: 20080327, end: 20080519
  5. RADIOTHERAPY [Suspect]
     Indication: HEAD AND NECK CANCER
     Dates: start: 20080605, end: 20080710
  6. DURAGESIC-100 [Concomitant]
     Dosage: 1 DOSAGE FORM = 25MCG/HOUR FOR 3 DAYS AS OF 26JUN2008.
     Route: 062
  7. PANTOZOL [Concomitant]
     Route: 048

REACTIONS (3)
  - CATHETER RELATED INFECTION [None]
  - HYPERTHYROIDISM [None]
  - SEPSIS [None]
